FAERS Safety Report 5870483-9 (Version None)
Quarter: 2008Q3

REPORT INFORMATION
  Report Type: 
  Country: None (occurrence: None)
  Receive Date: 20080904
  Receipt Date: 20080714
  Transmission Date: 20090109
  Serious: Yes (Other)
  Sender: FDA-Public Use
  Company Number: US-BRISTOL-MYERS SQUIBB COMPANY-14241160

PATIENT
  Age: 41 Year
  Sex: Male

DRUGS (10)
  1. DEFINITY [Suspect]
     Indication: STRESS ECHOCARDIOGRAM
  2. ATROPINE [Suspect]
     Route: 042
     Dates: start: 20080421
  3. DOBUTAMINE HCL [Suspect]
     Dates: start: 20080421
  4. ASPIRIN [Concomitant]
  5. COREG [Concomitant]
  6. PLAVIX [Concomitant]
  7. LOVENOX [Concomitant]
  8. PEPCID [Concomitant]
  9. LANTUS [Concomitant]
  10. LOPID [Concomitant]

REACTIONS (2)
  - HEADACHE [None]
  - HYPERTENSION [None]
